FAERS Safety Report 4433914-7 (Version None)
Quarter: 2004Q3

REPORT INFORMATION
  Report Type: 
  Country: None (occurrence: None)
  Receive Date: 20040824
  Receipt Date: 20040824
  Transmission Date: 20050211
  Serious: Yes (Life-Threatening, Disabling)
  Sender: FDA-Public Use
  Company Number: None

PATIENT
  Age: 58 Year
  Sex: Male
  Weight: 78.4723 kg

DRUGS (11)
  1. AVASTIN [Suspect]
     Indication: RECTAL CANCER METASTATIC
     Dosage: 5MG/KG Q2WEEKS INTRAVENOUS
     Route: 042
     Dates: start: 20040419, end: 20040707
  2. FOLFIRI [Concomitant]
  3. AVASTIN [Concomitant]
  4. ONDANSETRON HCL [Concomitant]
  5. NYSTATIN [Concomitant]
  6. DECADRON [Concomitant]
  7. DEXAMETHASONE [Concomitant]
  8. PRILOSEC [Concomitant]
  9. ATIVAN [Concomitant]
  10. COMPAZINE [Concomitant]
  11. COUMADIN [Concomitant]

REACTIONS (2)
  - DIZZINESS [None]
  - EJECTION FRACTION DECREASED [None]
